FAERS Safety Report 5729875-0 (Version None)
Quarter: 2008Q2

REPORT INFORMATION
  Report Type: 
  Country: None (occurrence: None)
  Receive Date: 20080502
  Receipt Date: 20080419
  Transmission Date: 20081010
  Serious: Yes (Hospitalization)
  Sender: FDA-Public Use
  Company Number: 2008PV035057

PATIENT
  Sex: Female

DRUGS (1)
  1. SYMLIN [Suspect]
     Indication: DRUG USE FOR UNKNOWN INDICATION
     Dosage: ; SC
     Route: 058

REACTIONS (1)
  - DRUG PRESCRIBING ERROR [None]
